FAERS Safety Report 4406596-8 (Version None)
Quarter: 2004Q3

REPORT INFORMATION
  Report Type: 
  Country: None (occurrence: None)
  Receive Date: 20040723
  Receipt Date: 20040713
  Transmission Date: 20050211
  Serious: Yes (Other)
  Sender: FDA-Public Use
  Company Number: GB-GLAXOSMITHKLINE-B0338833A

PATIENT
  Sex: Male

DRUGS (6)
  1. FLIXOTIDE [Suspect]
     Route: 055
     Dates: start: 20040501
  2. VERAPAMIL [Concomitant]
     Route: 065
  3. THYROXINE [Concomitant]
     Route: 065
  4. ISOSORBIDE MONONITRATE [Concomitant]
     Route: 065
  5. ASPIRIN [Concomitant]
     Route: 065
  6. ATORVASTATIN CALCIUM [Concomitant]
     Route: 065

REACTIONS (3)
  - ANGINA PECTORIS [None]
  - DISORIENTATION [None]
  - HEART RATE INCREASED [None]
